FAERS Safety Report 11846889 (Version 1)
Quarter: 2015Q4

REPORT INFORMATION
  Report Type: Spontaneous
  Country: US (occurrence: US)
  Receive Date: 20151217
  Receipt Date: 20151217
  Transmission Date: 20160305
  Serious: No
  Sender: FDA-Public Use
  Company Number: US-ROCHE-1515398

PATIENT

DRUGS (1)
  1. TAMIFLU [Suspect]
     Active Substance: OSELTAMIVIR PHOSPHATE
     Indication: INFLUENZA
     Route: 065

REACTIONS (9)
  - Burning sensation [Unknown]
  - Pneumonia [Unknown]
  - Dehydration [Unknown]
  - Hypersomnia [Unknown]
  - Malaise [Unknown]
  - Unevaluable event [Unknown]
  - Nausea [Unknown]
  - Cyst [Unknown]
  - Diarrhoea haemorrhagic [Not Recovered/Not Resolved]
